FAERS Safety Report 20700453 (Version 1)
Quarter: 2022Q2

REPORT INFORMATION
  Report Type: Spontaneous
  Country: US (occurrence: None)
  Receive Date: 20220410
  Receipt Date: 20220410
  Transmission Date: 20220721
  Serious: Yes (Life-Threatening, Hospitalization)
  Sender: FDA-Public Use
  Company Number: None

PATIENT
  Age: 49 Year
  Sex: Male
  Weight: 85.5 kg

DRUGS (12)
  1. CLARITHROMYCIN [Suspect]
     Active Substance: CLARITHROMYCIN
     Indication: Antibiotic prophylaxis
     Dosage: OTHER QUANTITY : 1 TABLET(S)?FREQUENCY : EVERY 12 HOURS?
     Route: 048
     Dates: start: 20220404, end: 20220408
  2. CLARITHROMYCIN [Suspect]
     Active Substance: CLARITHROMYCIN
     Indication: Postoperative care
  3. METOPROLOL TARTRATE [Concomitant]
     Active Substance: METOPROLOL TARTRATE
  4. LIPITOR [Concomitant]
     Active Substance: ATORVASTATIN CALCIUM
  5. VASCEPA [Concomitant]
     Active Substance: ICOSAPENT ETHYL
  6. PLAVIX [Concomitant]
     Active Substance: CLOPIDOGREL BISULFATE
  7. ASPIRIN [Concomitant]
     Active Substance: ASPIRIN
  8. NIACIN [Concomitant]
     Active Substance: NIACIN
  9. NITROGLYCERIN [Concomitant]
     Active Substance: NITROGLYCERIN
  10. MONTELUKAST [Concomitant]
     Active Substance: MONTELUKAST SODIUM
  11. ZYRTEC [Concomitant]
     Active Substance: CETIRIZINE HYDROCHLORIDE
  12. VITAMINS [Concomitant]
     Active Substance: VITAMINS

REACTIONS (3)
  - Palpitations [None]
  - Heart rate increased [None]
  - Blood pressure increased [None]

NARRATIVE: CASE EVENT DATE: 20220408
